FAERS Safety Report 5989480-8 (Version None)
Quarter: 2008Q4

REPORT INFORMATION
  Report Type: 
  Country: None (occurrence: None)
  Receive Date: 20081208
  Receipt Date: 20081201
  Transmission Date: 20090506
  Serious: Yes (Hospitalization)
  Sender: FDA-Public Use
  Company Number: FABR-1000411

PATIENT
  Age: 36 Year
  Sex: Female

DRUGS (1)
  1. FABRAZYME [Suspect]
     Indication: FABRY'S DISEASE
     Dosage: 105 MG, Q2W, INTRAVENOUS
     Route: 042
     Dates: start: 20031101

REACTIONS (5)
  - ABDOMINAL PAIN [None]
  - ADNEXA UTERI PAIN [None]
  - PAIN IN EXTREMITY [None]
  - PNEUMONIA [None]
  - THYROID DISORDER [None]
